FAERS Safety Report 19945343 (Version 1)
Quarter: 2021Q4

REPORT INFORMATION
  Report Type: Spontaneous
  Country: SG (occurrence: SG)
  Receive Date: 20211012
  Receipt Date: 20211012
  Transmission Date: 20220303
  Serious: Yes (Other)
  Sender: FDA-Public Use
  Company Number: SG-ABBVIE-21K-141-4111442-00

PATIENT
  Age: 31 Year
  Sex: Female

DRUGS (1)
  1. VALPROIC ACID [Suspect]
     Active Substance: VALPROIC ACID
     Indication: Product used for unknown indication
     Route: 065

REACTIONS (1)
  - Mitochondrial toxicity [Unknown]

NARRATIVE: CASE EVENT DATE: 20210811
